FAERS Safety Report 8396608-1 (Version None)
Quarter: 2012Q2

REPORT INFORMATION
  Report Type: 
  Country: None (occurrence: None)
  Receive Date: 20120530
  Receipt Date: 20120523
  Transmission Date: 20120825
  Serious: Yes (Hospitalization, Disabling, Other)
  Sender: FDA-Public Use
  Company Number: US-ROXANE LABORATORIES, INC.-2012-RO-01303RO

PATIENT
  Age: 59 Year
  Sex: Male

DRUGS (1)
  1. LITHIUM CARBONATE [Suspect]
     Indication: BIPOLAR DISORDER

REACTIONS (4)
  - MONOPLEGIA [None]
  - TOXICITY TO VARIOUS AGENTS [None]
  - RHABDOMYOLYSIS [None]
  - RENAL FAILURE ACUTE [None]
